FAERS Safety Report 7934757-X (Version None)
Quarter: 2011Q4

REPORT INFORMATION
  Report Type: 
  Country: None (occurrence: None)
  Receive Date: 20111122
  Receipt Date: 20111118
  Transmission Date: 20120403
  Serious: Yes (Death, Life-Threatening, Hospitalization)
  Sender: FDA-Public Use
  Company Number: KR-CEPHALON-2011000336

PATIENT
  Sex: Female

DRUGS (21)
  1. DEXAMETHASONE [Concomitant]
     Dates: start: 20110111, end: 20110115
  2. DEXTROMETHORPHAN HYDROBROMIDE [Concomitant]
     Dates: start: 20110304, end: 20110308
  3. PREDNISOLONE ACETATE [Concomitant]
     Dates: start: 20110308, end: 20110308
  4. BENDAMUSTINE HCL [Suspect]
     Route: 042
     Dates: start: 20110216, end: 20110217
  5. RITUXIMAB [Suspect]
     Route: 041
     Dates: start: 20110215, end: 20110215
  6. CHLORHEXIDINE GLUCONATE [Concomitant]
     Dates: start: 20110217, end: 20110223
  7. METHYLPREDNISOLONE SODIUM SUCCINATE [Concomitant]
     Dates: start: 20110228, end: 20110308
  8. CIMETIDINE [Concomitant]
     Dates: start: 20110114, end: 20110115
  9. CHLORPHENIRAMINE MALEATE [Concomitant]
     Dates: start: 20110111, end: 20110111
  10. PREDNISOLONE [Concomitant]
     Dates: start: 20110305, end: 20110306
  11. IPRATROPIUM BROMIDE [Concomitant]
     Dates: start: 20110306, end: 20110309
  12. DIHYDROCODEINE PHOSPHATE [Concomitant]
     Dates: start: 20110306, end: 20110309
  13. TRIMETAZIDINE HYDROCHLORIDE [Concomitant]
     Dates: start: 20080513
  14. ACETAMINOPHEN [Concomitant]
     Dates: start: 20110111, end: 20110111
  15. GRANISETRON HCL [Concomitant]
     Dates: start: 20110112, end: 20110115
  16. MEROPENEM [Concomitant]
     Dates: start: 20110307, end: 20110308
  17. BENDAMUSTINE HCL [Suspect]
     Indication: DIFFUSE LARGE B-CELL LYMPHOMA RECURRENT
     Route: 041
     Dates: start: 20110112, end: 20110113
  18. DILTIAZEM HCL [Concomitant]
     Dates: start: 20080513
  19. ACETYLSALICYLIC ACID SRT [Concomitant]
     Dates: start: 20080513
  20. SUCRALFATE [Concomitant]
     Dates: start: 20110114, end: 20110115
  21. RITUXIMAB [Suspect]
     Indication: DIFFUSE LARGE B-CELL LYMPHOMA RECURRENT
     Route: 041
     Dates: start: 20110111, end: 20110111

REACTIONS (2)
  - PNEUMONIA [None]
  - RESPIRATORY FAILURE [None]
